FAERS Safety Report 7998961-7 (Version None)
Quarter: 2011Q4

REPORT INFORMATION
  Report Type: 
  Country: None (occurrence: None)
  Receive Date: 20111221
  Receipt Date: 20111215
  Transmission Date: 20120403
  Serious: Yes (Other)
  Sender: FDA-Public Use
  Company Number: CHPA2011US018213

PATIENT
  Sex: Female

DRUGS (1)
  1. BUCKLEY'S COUGH MIXTURE [Suspect]
     Dosage: 1 TSP, BID
     Route: 048

REACTIONS (3)
  - HEART RATE INCREASED [None]
  - ATRIAL FIBRILLATION [None]
  - HYPERTENSION [None]
